FAERS Safety Report 10263017 (Version 2)
Quarter: 2014Q2

REPORT INFORMATION
  Report Type: Report from Study
  Country: US (occurrence: US)
  Receive Date: 20140626
  Receipt Date: 20140626
  Transmission Date: 20141212
  Serious: Yes (Hospitalization, Other)
  Sender: FDA-Public Use
  Company Number: US-MYLANLABS-2013S1026484

PATIENT
  Age: 23 Year
  Sex: Female
  Weight: 68.04 kg

DRUGS (9)
  1. CLOZAPINE TABLETS [Suspect]
     Indication: PSYCHOTIC DISORDER
     Route: 048
     Dates: start: 20131113, end: 20131120
  2. ZYPREXA [Concomitant]
     Dosage: PRN ORDER FOR 5MG Q6H
     Route: 048
  3. GABAPENTIN [Concomitant]
     Route: 048
  4. EFFEXOR [Concomitant]
     Route: 048
  5. TENEX [Concomitant]
     Route: 048
  6. OMEPRAZOLE [Concomitant]
     Dosage: WITH MEALS
     Route: 048
  7. HYDROXYZINE [Concomitant]
     Route: 048
  8. MIRTAZAPINE [Concomitant]
     Route: 048
  9. LITHIUM [Concomitant]
     Dosage: AT NOON DAILY
     Route: 048

REACTIONS (2)
  - Granulocytopenia [Recovered/Resolved]
  - White blood cell count decreased [Recovered/Resolved]
